FAERS Safety Report 8996708 (Version 1)
Quarter: 2012Q4

REPORT INFORMATION
  Report Type: Spontaneous
  Country: US (occurrence: None)
  Receive Date: 20121228
  Receipt Date: 20121228
  Transmission Date: 20130627
  Serious: No
  Sender: FDA-Public Use
  Company Number: None

PATIENT
  Sex: Male

DRUGS (1)
  1. ZYTIGA 250MG [Suspect]
     Indication: PROSTATE CANCER
     Dosage: 1000 mg QD PO
     Route: 048
     Dates: start: 20120601, end: 201212

REACTIONS (2)
  - Treatment failure [None]
  - Condition aggravated [None]
